FAERS Safety Report 8348339-1 (Version None)
Quarter: 2012Q2

REPORT INFORMATION
  Report Type: 
  Country: None (occurrence: None)
  Receive Date: 20120509
  Receipt Date: 20120508
  Transmission Date: 20120825
  Serious: Yes (Disabling)
  Sender: FDA-Public Use
  Company Number: US-PFIZER INC-2012112382

PATIENT
  Sex: Female
  Weight: 105 kg

DRUGS (6)
  1. DIOVAN HCT [Concomitant]
     Indication: HYPERTENSION
     Dosage: 80/12.5MG, DAILY
  2. LIPITOR [Suspect]
     Indication: BLOOD CHOLESTEROL ABNORMAL
     Dosage: 10 MG, DAILY
     Dates: start: 20070101
  3. GABAPENTIN [Concomitant]
     Dosage: 400 MG, TWO TIMES A DAY
  4. CELEBREX [Suspect]
     Indication: ARTHRITIS
     Dosage: 200 MG, DAILY
  5. CELEBREX [Suspect]
     Indication: NERVE INJURY
  6. METFORMIN [Concomitant]
     Indication: DIABETES MELLITUS
     Dosage: 500 MG, TWO TIMES A DAY

REACTIONS (1)
  - NERVE INJURY [None]
